FAERS Safety Report 10952608 (Version 1)
Quarter: 2015Q1

REPORT INFORMATION
  Report Type: Spontaneous
  Country: US (occurrence: None)
  Receive Date: 20150324
  Receipt Date: 20150324
  Transmission Date: 20150721
  Serious: Yes (Hospitalization, Other)
  Sender: FDA-Public Use
  Company Number: None

PATIENT
  Age: 53 Year
  Sex: Female
  Weight: 63.5 kg

DRUGS (6)
  1. CIPRO [Suspect]
     Active Substance: CIPROFLOXACIN HYDROCHLORIDE
     Indication: UPPER RESPIRATORY TRACT INFECTION
     Dosage: TAKEN BY MOUTH
     Dates: start: 20090220, end: 20120723
  2. PROBIOTIC [Concomitant]
     Active Substance: PROBIOTICS NOS
  3. OMEPRAZOLE. [Concomitant]
     Active Substance: OMEPRAZOLE
  4. COLACE [Concomitant]
     Active Substance: DOCUSATE SODIUM
  5. XANAX [Concomitant]
     Active Substance: ALPRAZOLAM
  6. CIPRO [Suspect]
     Active Substance: CIPROFLOXACIN HYDROCHLORIDE
     Indication: SINUSITIS
     Dosage: TAKEN BY MOUTH
     Dates: start: 20090220, end: 20120723

REACTIONS (7)
  - Impaired healing [None]
  - Ligament injury [None]
  - Hypoaesthesia [None]
  - Bone disorder [None]
  - Tendon rupture [None]
  - Cold sweat [None]
  - Anxiety [None]

NARRATIVE: CASE EVENT DATE: 20130707
